FAERS Safety Report 8838964 (Version 1)
Quarter: 2012Q4

REPORT INFORMATION
  Report Type: 
  Country: US (occurrence: None)
  Receive Date: 20121011
  Receipt Date: 20121011
  Transmission Date: 20130627
  Serious: Yes (Other)
  Sender: FDA-Public Use
  Company Number: None

PATIENT
  Sex: Male
  Weight: 67.7 kg

DRUGS (1)
  1. SUBOXONE [Suspect]
     Indication: OPIOID TYPE DEPENDENCE
     Dosage: 8/2 mg 2 every day daily sub-lingual
     Route: 060
     Dates: start: 20120913

REACTIONS (1)
  - Oedema [None]
